FAERS Safety Report 15705497 (Version 1)
Quarter: 2018Q4

REPORT INFORMATION
  Report Type: Spontaneous
  Country: US (occurrence: US)
  Receive Date: 20181210
  Receipt Date: 20181210
  Transmission Date: 20190205
  Serious: Yes (Other)
  Sender: FDA-Public Use
  Company Number: None

PATIENT
  Age: 85 Year
  Sex: Male
  Weight: 76.5 kg

DRUGS (16)
  1. VITAMINS A + D [Concomitant]
  2. APAP [Concomitant]
     Active Substance: ACETAMINOPHEN
  3. VITAMIN D3 [Concomitant]
     Active Substance: CHOLECALCIFEROL
  4. MIRALAX [Concomitant]
     Active Substance: POLYETHYLENE GLYCOL 3350
  5. LUPRON DEPOT 4 MONTH [Concomitant]
  6. CALCIUM [Concomitant]
     Active Substance: CALCIUM
  7. ZINC. [Concomitant]
     Active Substance: ZINC
  8. MAGNESIUM [Concomitant]
     Active Substance: MAGNESIUM
  9. PREDNISONE. [Concomitant]
     Active Substance: PREDNISONE
  10. HYDROCODONE-APAP [Concomitant]
     Active Substance: ACETAMINOPHEN\HYDROCODONE
  11. ZYTIGA [Suspect]
     Active Substance: ABIRATERONE ACETATE
     Indication: PROSTATE CANCER
     Route: 048
     Dates: start: 20180807, end: 20181207
  12. ONDANSETRON [Concomitant]
     Active Substance: ONDANSETRON
  13. XGEVA [Concomitant]
     Active Substance: DENOSUMAB
  14. TAMSULOSIN [Concomitant]
     Active Substance: TAMSULOSIN
  15. MULTIVITAMIN ADULT [Concomitant]
  16. VITAMIN C ER [Concomitant]

REACTIONS (1)
  - Headache [None]

NARRATIVE: CASE EVENT DATE: 20181207
